FAERS Safety Report 5683130-6 (Version None)
Quarter: 2008Q1

REPORT INFORMATION
  Report Type: 
  Country: None (occurrence: None)
  Receive Date: 20080327
  Receipt Date: 20080321
  Transmission Date: 20080703
  Serious: Yes (Hospitalization)
  Sender: FDA-Public Use
  Company Number: US-ELI_LILLY_AND_COMPANY-US_0508121246

PATIENT
  Sex: Female
  Weight: 142.27 kg

DRUGS (11)
  1. EXENATIDE [Suspect]
     Indication: DIABETES MELLITUS
     Dosage: 5 UG, 2/D
     Route: 058
     Dates: start: 20050721, end: 20050725
  2. EXENATIDE [Suspect]
     Dosage: UNK, UNKNOWN
     Route: 065
  3. LISINOPRIL [Concomitant]
     Dosage: 10 MG, DAILY (1/D)
     Route: 048
  4. ATENOLOL [Concomitant]
     Dosage: UNK, UNKNOWN
  5. LIPITOR [Concomitant]
     Dosage: UNK, UNKNOWN
  6. METFORMIN [Concomitant]
     Dosage: UNK, UNKNOWN
  7. ACTOS [Concomitant]
     Dosage: UNK, UNKNOWN
  8. SINGULAIR [Concomitant]
     Dosage: UNK, UNKNOWN
  9. ALBUTEROL [Concomitant]
     Dosage: UNK, UNKNOWN
  10. ASPIRIN [Concomitant]
     Dosage: UNK, UNKNOWN
  11. PLAVIX [Concomitant]
     Dosage: UNK, UNKNOWN

REACTIONS (2)
  - ANAEMIA [None]
  - PANCREATITIS ACUTE [None]
